FAERS Safety Report 24095389 (Version 1)
Quarter: 2024Q3

REPORT INFORMATION
  Report Type: Spontaneous
  Country: None (occurrence: None)
  Receive Date: 20240716
  Receipt Date: 20240716
  Transmission Date: 20241017
  Serious: Yes (Life-Threatening, Hospitalization)
  Sender: STRIDES
  Company Number: -STRIDES ARCOLAB LIMITED-2024SP008507

PATIENT
  Age: 15 Year
  Sex: Female
  Weight: 63.7 kg

DRUGS (2)
  1. AMLODIPINE [Suspect]
     Active Substance: AMLODIPINE BESYLATE
     Indication: Product used for unknown indication
     Dosage: 200 MILLIGRAM (20 TABLETS OF 10 MG AMLODIPINE)
     Route: 048
  2. TIZANIDINE [Suspect]
     Active Substance: TIZANIDINE
     Indication: Product used for unknown indication
     Dosage: 14 DOSAGE FORM (14 TABLETS OF 5 MG TIZANIDINE)
     Route: 048

REACTIONS (12)
  - Acute respiratory distress syndrome [Recovered/Resolved]
  - Respiratory failure [Recovered/Resolved]
  - Acute kidney injury [Recovered/Resolved]
  - Pulmonary oedema [Recovered/Resolved]
  - Hypotension [Recovered/Resolved]
  - Tachycardia [Recovered/Resolved]
  - Chest pain [Recovered/Resolved]
  - Nausea [Recovered/Resolved]
  - Vomiting [Recovered/Resolved]
  - Dizziness [Recovered/Resolved]
  - Toxicity to various agents [Recovered/Resolved]
  - Overdose [Unknown]
